FAERS Safety Report 24619925 (Version 1)
Quarter: 2024Q4

REPORT INFORMATION
  Report Type: Spontaneous
  Country: CH (occurrence: CH)
  Receive Date: 20241114
  Receipt Date: 20241114
  Transmission Date: 20250115
  Serious: Yes (Hospitalization, Other)
  Sender: TEVA
  Company Number: None

PATIENT
  Age: 90 Year
  Sex: Female
  Weight: 80 kg

DRUGS (13)
  1. SULFAMETHOXAZOLE\TRIMETHOPRIM [Suspect]
     Active Substance: SULFAMETHOXAZOLE\TRIMETHOPRIM
     Indication: Urinary tract infection
     Dosage: NOPIL FORTE 800/160 MG 1-0-1
     Route: 048
     Dates: start: 20240830, end: 20240901
  2. VALVERDE SCHLAF [Concomitant]
     Indication: Insomnia
     Dosage: TIME INTERVAL: AS NECESSARY: 1X 60 MG /250 MG ON DEMAND AT NIGHT, ONCE AT NIGHT IN RESERVE
     Route: 048
  3. DAFALGAN [Concomitant]
     Active Substance: ACETAMINOPHEN
     Indication: Pain
     Dosage: TIME INTERVAL: AS NECESSARY: 500 MG EVERY 6 HOURS IF NEEDED IN MODERATE PAIN AND FEVER
     Route: 048
  4. ZOLPIDEM TARTRATE [Concomitant]
     Active Substance: ZOLPIDEM TARTRATE
     Indication: Insomnia
     Dosage: 0-0-0-0.5
     Route: 048
  5. DAPAGLIFLOZIN [Concomitant]
     Active Substance: DAPAGLIFLOZIN
     Indication: Product used for unknown indication
     Dosage: 10 MG 1-0-0 (PAUSED)
     Route: 048
     Dates: end: 20240901
  6. PREGABALIN [Suspect]
     Active Substance: PREGABALIN
     Indication: Product used for unknown indication
     Dosage: PREGABALIN VIATRIS 75 MG 1-0-1 (PAUSED)
     Route: 065
     Dates: end: 20240901
  7. RYZODEG 70/30 [Concomitant]
     Active Substance: INSULIN ASPART\INSULIN DEGLUDEC
     Indication: Insulin-requiring type 2 diabetes mellitus
     Dosage: 100 U/ML FLEXTOUCH UNITS 0-0-18
     Route: 058
  8. TORSEMIDE [Suspect]
     Active Substance: TORSEMIDE
     Indication: Cardiac failure chronic
     Dosage: 10 MG 3-0-0-0 (PAUSED)
     Route: 048
     Dates: end: 20240901
  9. ALDACTONE [Suspect]
     Active Substance: SPIRONOLACTONE
     Indication: Cardiac failure chronic
     Dosage: 50 MG 1X/D (PAUSED)
     Route: 048
     Dates: end: 20240901
  10. SPIRIVA [Concomitant]
     Active Substance: TIOTROPIUM BROMIDE MONOHYDRATE
     Indication: Product used for unknown indication
     Dosage: 18 MCG 1-0-0-0 INHALED (PAUSED)
     Route: 055
     Dates: end: 20240901
  11. NOVORAPID [Concomitant]
     Active Substance: INSULIN ASPART
     Indication: Insulin-requiring type 2 diabetes mellitus
     Dosage: TIME INTERVAL: AS NECESSARY: 100 U/ML INJECTION SOLUTION E ACCORDING TO SCHEME
     Route: 058
  12. LISINOPRIL [Suspect]
     Active Substance: LISINOPRIL
     Indication: Hypertensive heart disease
     Dosage: 1-0-0-0 (NOT CLEAR, WHETHER TEMPORARILY PAUSED), NOT SURE IF TEMPORARILY PAUSED AT ADMISSION,
     Route: 048
  13. ELIQUIS [Concomitant]
     Active Substance: APIXABAN
     Indication: Atrial fibrillation
     Dosage: 2. 5 MG 1-0-1
     Route: 048

REACTIONS (2)
  - Acute kidney injury [Recovering/Resolving]
  - Hyperkalaemia [Recovered/Resolved]

NARRATIVE: CASE EVENT DATE: 20240901
